FAERS Safety Report 7447389-7 (Version None)
Quarter: 2011Q2

REPORT INFORMATION
  Report Type: 
  Country: None (occurrence: None)
  Receive Date: 20110429
  Receipt Date: 20110223
  Transmission Date: 20111010
  Serious: No
  Sender: FDA-Public Use
  Company Number: US-ASTRAZENECA-2011SE10377

PATIENT
  Age: 63 Year
  Sex: Female
  Weight: 61.2 kg

DRUGS (12)
  1. ZETIA [Concomitant]
  2. TRAMADOL [Concomitant]
  3. COREG [Concomitant]
  4. AMBIEN CR [Concomitant]
  5. NEXIUM [Suspect]
     Indication: BILIARY CIRRHOSIS PRIMARY
     Route: 048
     Dates: start: 20000101
  6. ALTACE [Concomitant]
  7. ACETAMINOPHEN [Concomitant]
  8. COLCHICINE [Concomitant]
  9. CRESTOR [Concomitant]
  10. ACTIGALL [Concomitant]
  11. PLAVIX [Concomitant]
  12. ACYCLOVIR [Concomitant]

REACTIONS (2)
  - INTENTIONAL DRUG MISUSE [None]
  - INAPPROPRIATE SCHEDULE OF DRUG ADMINISTRATION [None]
